FAERS Safety Report 20626602 (Version 1)
Quarter: 2022Q1

REPORT INFORMATION
  Report Type: Report from Study
  Country: DE (occurrence: DE)
  Receive Date: 20220323
  Receipt Date: 20220323
  Transmission Date: 20220423
  Serious: Yes (Other)
  Sender: FDA-Public Use
  Company Number: DE-MYLANLABS-2022M1021240

PATIENT
  Age: 34 Year
  Sex: Male

DRUGS (5)
  1. RISPERIDONE [Interacting]
     Active Substance: RISPERIDONE
     Indication: Antipsychotic therapy
     Dosage: 2 MILLIGRAM, BID
     Route: 065
  2. ACETYLCYSTEINE [Interacting]
     Active Substance: ACETYLCYSTEINE
     Indication: Dermatillomania
     Dosage: 600 MILLIGRAM, QD (AS A SINGLE DAILY DOSE)
     Route: 065
  3. ACETYLCYSTEINE [Interacting]
     Active Substance: ACETYLCYSTEINE
     Indication: Prader-Willi syndrome
     Dosage: UNK, QD (INCREASED UP TO A TARGET DOSE OF 1800MG DAILY)
     Route: 065
  4. ACETYLCYSTEINE [Interacting]
     Active Substance: ACETYLCYSTEINE
     Indication: Psychiatric symptom
  5. PIPAMPERONE [Interacting]
     Active Substance: PIPAMPERONE
     Indication: Antipsychotic therapy
     Dosage: 120 MILLIGRAM, QD TOTAL DOSE
     Route: 065

REACTIONS (2)
  - Drug ineffective [Unknown]
  - Drug interaction [Unknown]
